FAERS Safety Report 7072740-X (Version None)
Quarter: 2010Q4

REPORT INFORMATION
  Report Type: 
  Country: None (occurrence: None)
  Receive Date: 20101029
  Receipt Date: 20100305
  Transmission Date: 20110411
  Serious: No
  Sender: FDA-Public Use
  Company Number: A0848685A

PATIENT
  Age: 50 Year
  Sex: Male

DRUGS (4)
  1. ADVAIR DISKUS 100/50 [Suspect]
     Indication: ASTHMA
     Dosage: 1PUFF TWICE PER DAY
     Route: 055
     Dates: start: 20070101
  2. TESTIM [Suspect]
     Route: 065
  3. ALBUTEROL [Concomitant]
  4. BECONASE [Concomitant]

REACTIONS (5)
  - COUGH [None]
  - DRUG INTERACTION [None]
  - DYSPHONIA [None]
  - DYSPNOEA [None]
  - ILL-DEFINED DISORDER [None]
